FAERS Safety Report 5893411-9 (Version None)
Quarter: 2008Q3

REPORT INFORMATION
  Report Type: 
  Country: None (occurrence: None)
  Receive Date: 20080923
  Receipt Date: 20080916
  Transmission Date: 20090109
  Serious: No
  Sender: FDA-Public Use
  Company Number: DE-WYE-H05611408

PATIENT
  Sex: Male
  Weight: 84 kg

DRUGS (7)
  1. TACROLIMUS [Suspect]
     Indication: PROPHYLAXIS AGAINST TRANSPLANT REJECTION
     Dosage: 1 MG (2-0-2)
     Route: 048
  2. ACETYLSALICYLIC ACID SRT [Concomitant]
     Dosage: 100 MG (1-0-0)
     Route: 065
  3. AMLODIPINE [Concomitant]
     Indication: HYPERTENSION
     Dosage: 5 MG (1-0-0)
     Route: 065
  4. METOPROLOL TARTRATE [Concomitant]
     Indication: HYPERTENSION
     Dosage: DOSAGE NOT SPECIFIED, 1/2-0-1/2
     Route: 065
  5. ENALAPRIL MALEATE [Concomitant]
     Dosage: 20 (UNITS UNKNOWN) 1/2-0-1/2
     Route: 065
  6. MYFORTIC [Concomitant]
     Indication: PROPHYLAXIS AGAINST TRANSPLANT REJECTION
     Dosage: 720 MG (1-0-1)
     Route: 065
  7. URSODEOXYCHOLIC ACID [Concomitant]
     Indication: CHOLELITHIASIS
     Dosage: 250 MG (1-1-1)
     Route: 065

REACTIONS (2)
  - DIVERTICULUM INTESTINAL [None]
  - INTESTINAL POLYP [None]
